FAERS Safety Report 19614533 (Version 2)
Quarter: 2021Q3

REPORT INFORMATION
  Report Type: Report from Study
  Country: US (occurrence: US)
  Receive Date: 20210727
  Receipt Date: 20210923
  Transmission Date: 20211014
  Serious: Yes (Life-Threatening, Other)
  Sender: FDA-Public Use
  Company Number: US-JNJFOC-20210741732

PATIENT
  Age: 32 Year
  Sex: Male
  Weight: 127.12 kg

DRUGS (1)
  1. SPRAVATO [Suspect]
     Active Substance: ESKETAMINE
     Indication: DEPRESSION
     Dosage: 56 MG, 4 TOTAL DOSES
     Dates: start: 20210415, end: 20210629

REACTIONS (1)
  - Suicidal ideation [Recovered/Resolved]
